FAERS Safety Report 17093557 (Version 1)
Quarter: 2019Q4

REPORT INFORMATION
  Report Type: Spontaneous
  Country: US (occurrence: US)
  Receive Date: 20191129
  Receipt Date: 20191129
  Transmission Date: 20200122
  Serious: Yes (Death, Other)
  Sender: FDA-Public Use
  Company Number: US-SHIRE-US201940264

PATIENT
  Age: 91 Year
  Sex: Male

DRUGS (1)
  1. FIRAZYR [Suspect]
     Active Substance: ICATIBANT ACETATE
     Indication: PRODUCT USED FOR UNKNOWN INDICATION
     Dosage: 300 MILLIGRAM, AS REQ^D
     Route: 058
     Dates: start: 20190617

REACTIONS (4)
  - Death [Unknown]
  - Hypertension [Unknown]
  - Cardiac failure congestive [Unknown]
  - Fall [Unknown]

NARRATIVE: CASE EVENT DATE: 20191114
